FAERS Safety Report 9659152 (Version 3)
Quarter: 2013Q4

REPORT INFORMATION
  Report Type: Spontaneous
  Country: US (occurrence: US)
  Receive Date: 20131031
  Receipt Date: 20131216
  Transmission Date: 20140711
  Serious: No
  Sender: FDA-Public Use
  Company Number: US-009507513-1310USA010334

PATIENT
  Age: 42 Year
  Sex: Female

DRUGS (3)
  1. SAPHRIS [Suspect]
     Indication: DEPRESSION
     Dosage: 10 MG HS
     Route: 060
     Dates: start: 20130722, end: 20130813
  2. SAPHRIS [Suspect]
     Indication: MOOD ALTERED
     Dosage: THREE 10MG TABLETS PER DAY
     Dates: start: 20130813, end: 201310
  3. SAPHRIS [Suspect]
     Dosage: FOUR 10MG TABLETS PER DAY
     Route: 060
     Dates: start: 20131019, end: 20131021

REACTIONS (4)
  - Inappropriate schedule of drug administration [Unknown]
  - Overdose [Unknown]
  - Overdose [Unknown]
  - No adverse event [Unknown]
